FAERS Safety Report 6070136-0 (Version None)
Quarter: 2009Q1

REPORT INFORMATION
  Report Type: 
  Country: None (occurrence: None)
  Receive Date: 20090209
  Receipt Date: 20090206
  Transmission Date: 20090719
  Serious: Yes (Hospitalization)
  Sender: FDA-Public Use
  Company Number: US-EISAI MEDICAL RESEARCH-E7867-00021-CLI-US

PATIENT
  Sex: Female
  Weight: 61 kg

DRUGS (1)
  1. GLIADEL [Suspect]
     Indication: BRAIN NEOPLASM
     Route: 018
     Dates: start: 20081117

REACTIONS (9)
  - ALPHA HAEMOLYTIC STREPTOCOCCAL INFECTION [None]
  - BLOOD CALCIUM DECREASED [None]
  - BLOOD MAGNESIUM DECREASED [None]
  - BLOOD PHOSPHORUS DECREASED [None]
  - BLOOD POTASSIUM DECREASED [None]
  - CSF CULTURE POSITIVE [None]
  - INTRACRANIAL HYPOTENSION [None]
  - SOFT TISSUE NECROSIS [None]
  - SUBDURAL HYGROMA [None]
